FAERS Safety Report 17690571 (Version 4)
Quarter: 2021Q1

REPORT INFORMATION
  Report Type: Report from Study
  Country: IT (occurrence: IT)
  Receive Date: 20200421
  Receipt Date: 20210203
  Transmission Date: 20210419
  Serious: Yes (Other)
  Sender: FDA-Public Use
  Company Number: IT-INCYTE CORPORATION-2018IN012505

PATIENT

DRUGS (5)
  1. JAKAVI [Suspect]
     Active Substance: RUXOLITINIB
     Dosage: 20 OT
     Route: 065
     Dates: start: 20190129, end: 20190402
  2. JAKAVI [Suspect]
     Active Substance: RUXOLITINIB
     Dosage: 15 OT
     Route: 065
     Dates: start: 20180917, end: 20200127
  3. JAKAVI [Suspect]
     Active Substance: RUXOLITINIB
     Indication: POLYCYTHAEMIA VERA
     Dosage: 20 OT
     Route: 065
     Dates: start: 20180712, end: 20180819
  4. JAKAVI [Suspect]
     Active Substance: RUXOLITINIB
     Dosage: 10 OT
     Route: 065
     Dates: start: 20180820, end: 20180916
  5. JAKAVI [Suspect]
     Active Substance: RUXOLITINIB
     Dosage: 10 OT
     Route: 065
     Dates: start: 20190403

REACTIONS (11)
  - Platelet count decreased [Recovered/Resolved]
  - Asthenia [Recovered/Resolved]
  - Hyperuricaemia [Recovered/Resolved]
  - Paraesthesia [Not Recovered/Not Resolved]
  - VIIIth nerve injury [Recovered/Resolved]
  - Polyneuropathy [Recovered/Resolved]
  - Platelet count decreased [Recovered/Resolved]
  - Dysaesthesia [Unknown]
  - Deafness [Recovered/Resolved]
  - Vestibular disorder [Recovered/Resolved]
  - Anaemia [Recovered/Resolved]

NARRATIVE: CASE EVENT DATE: 20180820
